FAERS Safety Report 10607736 (Version 2)
Quarter: 2014Q4

REPORT INFORMATION
  Report Type: Spontaneous
  Country: US (occurrence: US)
  Receive Date: 20141125
  Receipt Date: 20141223
  Transmission Date: 20150529
  Serious: Yes (Death, Hospitalization, Other)
  Sender: FDA-Public Use
  Company Number: US-ASTELLAS-2014US018235

PATIENT
  Sex: Female

DRUGS (6)
  1. HYDROCODONE [Concomitant]
     Active Substance: HYDROCODONE
     Indication: PAIN
     Dosage: UNK, UNKNOWN FREQ.
     Route: 065
  2. TYLENOL [Concomitant]
     Active Substance: ACETAMINOPHEN
     Indication: PAIN
     Dosage: UNK, UNKNOWN FREQ.
     Route: 065
  3. TORADOL [Concomitant]
     Active Substance: KETOROLAC TROMETHAMINE
     Indication: PAIN
     Route: 042
  4. TARCEVA [Suspect]
     Active Substance: ERLOTINIB HYDROCHLORIDE
     Indication: LUNG NEOPLASM MALIGNANT
     Route: 048
     Dates: start: 20141020, end: 20141104
  5. ALEVE [Concomitant]
     Active Substance: NAPROXEN SODIUM
     Indication: PAIN
     Dosage: UNK, UNKNOWN FREQ.
     Route: 065
  6. DEMECLOCYCLINE [Concomitant]
     Active Substance: DEMECLOCYCLINE
     Indication: PAIN
     Route: 065

REACTIONS (12)
  - Metabolic acidosis [Unknown]
  - Hepatic enzyme increased [Unknown]
  - Nausea [Unknown]
  - Dehydration [Unknown]
  - Fatigue [Unknown]
  - Decreased appetite [Unknown]
  - Lung adenocarcinoma metastatic [Fatal]
  - Vomiting [Unknown]
  - Acute kidney injury [Unknown]
  - Drug intolerance [Unknown]
  - Asthenia [Unknown]
  - Blood creatinine increased [Unknown]
